FAERS Safety Report 4561499-3 (Version None)
Quarter: 2005Q1

REPORT INFORMATION
  Report Type: 
  Country: None (occurrence: None)
  Receive Date: 20050121
  Receipt Date: 20050105
  Transmission Date: 20050727
  Serious: Yes (Hospitalization)
  Sender: FDA-Public Use
  Company Number: 200500153

PATIENT
  Sex: Male
  Weight: 2.24 kg

DRUGS (1)
  1. TAZORAC [Suspect]
     Indication: DRUG EXPOSURE DURING PREGNANCY
     Dates: end: 20030916

REACTIONS (5)
  - BLOOD BILIRUBIN INCREASED [None]
  - DRUG EXPOSURE DURING PREGNANCY [None]
  - POOR SUCKING REFLEX [None]
  - PREMATURE BABY [None]
  - PREMATURE SEPARATION OF PLACENTA [None]
